FAERS Safety Report 8897891 (Version 1)
Quarter: 2012Q4

REPORT INFORMATION
  Report Type: 
  Country: US (occurrence: US)
  Receive Date: 20121108
  Receipt Date: 20121108
  Transmission Date: 20130627
  Serious: No
  Sender: FDA-Public Use
  Company Number: US-AMGEN-USASP2012024532

PATIENT
  Sex: Male

DRUGS (2)
  1. ENBREL [Suspect]
     Indication: RHEUMATOID ARTHRITIS
     Dosage: 50 mg, qwk
     Dates: start: 20120125, end: 20120317
  2. METHOTREXATE [Concomitant]
     Dosage: 6 mg, qwk
     Dates: start: 2002

REACTIONS (1)
  - Infected cyst [Recovered/Resolved]
